FAERS Safety Report 5762484-6 (Version None)
Quarter: 2008Q2

REPORT INFORMATION
  Report Type: 
  Country: None (occurrence: None)
  Receive Date: 20080609
  Receipt Date: 20080527
  Transmission Date: 20081010
  Serious: Yes (Other)
  Sender: FDA-Public Use
  Company Number: ES-BAYER-200819850GPV

PATIENT
  Age: 58 Year
  Sex: Female

DRUGS (1)
  1. ACTIRA [Suspect]
     Indication: PHARYNGITIS
     Dosage: TOTAL DAILY DOSE: 400 MG  UNIT DOSE: 400 MG
     Route: 048
     Dates: start: 20080411, end: 20080411

REACTIONS (4)
  - DIZZINESS [None]
  - DRY MOUTH [None]
  - EYE INFLAMMATION [None]
  - EYE PRURITUS [None]
